FAERS Safety Report 7357067-0 (Version None)
Quarter: 2011Q1

REPORT INFORMATION
  Report Type: 
  Country: None (occurrence: None)
  Receive Date: 20110317
  Receipt Date: 20100817
  Transmission Date: 20110831
  Serious: Yes (Hospitalization, Other)
  Sender: FDA-Public Use
  Company Number: US-BAYER-201028586NA

PATIENT
  Sex: Female
  Weight: 77 kg

DRUGS (1)
  1. YASMIN [Suspect]
     Indication: ACNE
     Route: 048

REACTIONS (2)
  - GALLBLADDER INJURY [None]
  - CHOLECYSTITIS ACUTE [None]
